FAERS Safety Report 17660703 (Version 1)
Quarter: 2020Q2

REPORT INFORMATION
  Report Type: Spontaneous
  Country: PL (occurrence: PL)
  Receive Date: 20200413
  Receipt Date: 20200413
  Transmission Date: 20200713
  Serious: Yes (Other)
  Sender: FDA-Public Use
  Company Number: PL-AMGEN-POLSP2020059447

PATIENT
  Age: 65 Year
  Sex: Male

DRUGS (5)
  1. OXALIPLATIN. [Concomitant]
     Active Substance: OXALIPLATIN
     Dosage: 85 MILLIGRAM/SQ. METER, DAY1
     Route: 042
  2. 5-FLUOROURACYL-KNOLL [Concomitant]
     Dosage: 400 MILLIGRAM/SQ. METER, DAY 1-2
     Route: 040
  3. PANITUMUMAB [Suspect]
     Active Substance: PANITUMUMAB
     Indication: COLON CANCER
     Dosage: 6 MILLIGRAM/KILOGRAM, QD
     Route: 042
     Dates: start: 201909, end: 202003
  4. 5-FLUOROURACIL [FLUOROURACIL] [Concomitant]
     Active Substance: FLUOROURACIL
     Dosage: 600 MILLIGRAM/SQ. METER, DAY 1-2
     Route: 042
  5. LEVOFOLIC [Concomitant]
     Active Substance: LEUCOVORIN
     Dosage: 100 MILLIGRAM/SQ. METER, DAY1-2
     Route: 042

REACTIONS (1)
  - Neutropenia [Recovered/Resolved]
